FAERS Safety Report 17438457 (Version 1)
Quarter: 2020Q1

REPORT INFORMATION
  Report Type: Spontaneous
  Country: US (occurrence: US)
  Receive Date: 20200204
  Receipt Date: 20200204
  Transmission Date: 20200409
  Serious: Yes (Hospitalization)
  Sender: FDA-Public Use
  Company Number: None

PATIENT
  Age: 58 Year
  Sex: Female
  Weight: 69.2 kg

DRUGS (1)
  1. TOPOTECAN [Suspect]
     Active Substance: TOPOTECAN HYDROCHLORIDE
     Dates: end: 20191226

REACTIONS (6)
  - White blood cell count decreased [None]
  - Ovarian neoplasm [None]
  - Nausea [None]
  - Neutrophil count decreased [None]
  - Chills [None]
  - Clostridial sepsis [None]

NARRATIVE: CASE EVENT DATE: 20191230
